FAERS Safety Report 10746247 (Version 3)
Quarter: 2015Q1

REPORT INFORMATION
  Report Type: Spontaneous
  Country: US (occurrence: US)
  Receive Date: 20150128
  Receipt Date: 20150226
  Transmission Date: 20150721
  Serious: No
  Sender: FDA-Public Use
  Company Number: US-TEVA-537054USA

PATIENT
  Age: 37 Year
  Sex: Female
  Weight: 73.55 kg

DRUGS (1)
  1. PARAGARD T 380A [Suspect]
     Active Substance: COPPER
     Indication: CONTRACEPTION
     Route: 015
     Dates: start: 20130813, end: 20150126

REACTIONS (4)
  - Device expulsion [Recovered/Resolved]
  - Suprapubic pain [Unknown]
  - Menorrhagia [Unknown]
  - Muscle spasms [Unknown]

NARRATIVE: CASE EVENT DATE: 20150126
